FAERS Safety Report 18082659 (Version 1)
Quarter: 2020Q3

REPORT INFORMATION
  Report Type: Spontaneous
  Country: FR (occurrence: FR)
  Receive Date: 20200728
  Receipt Date: 20200728
  Transmission Date: 20201103
  Serious: Yes (Other)
  Sender: FDA-Public Use
  Company Number: FR-BAUSCH-BL-2020-020783

PATIENT
  Age: 36 Year
  Sex: Male

DRUGS (17)
  1. LINEZOLIDE [Concomitant]
     Active Substance: LINEZOLID
     Indication: ENDOCARDITIS
     Dates: start: 20200525, end: 20200525
  2. OROZAMUDOL [Concomitant]
     Active Substance: TRAMADOL
     Indication: PRODUCT USED FOR UNKNOWN INDICATION
  3. DOLIPRANE [Concomitant]
     Active Substance: ACETAMINOPHEN
     Indication: PRODUCT USED FOR UNKNOWN INDICATION
  4. HYDROCORTISONE. [Concomitant]
     Active Substance: HYDROCORTISONE
     Indication: PRODUCT USED FOR UNKNOWN INDICATION
  5. METHADONE [Concomitant]
     Active Substance: METHADONE HYDROCHLORIDE
     Indication: PRODUCT USED FOR UNKNOWN INDICATION
  6. CLOXACILLINE [Concomitant]
     Active Substance: CLOXACILLIN
     Indication: ENDOCARDITIS
     Dates: start: 20200526
  7. RIFADINE [Suspect]
     Active Substance: RIFAMPIN
     Indication: ARTHRITIS
     Route: 065
     Dates: start: 20200604, end: 20200606
  8. LOVENOX [Concomitant]
     Active Substance: ENOXAPARIN SODIUM
     Indication: PRODUCT USED FOR UNKNOWN INDICATION
  9. METRONIDAZOLE. [Concomitant]
     Active Substance: METRONIDAZOLE
     Indication: ENDOCARDITIS
     Dates: start: 20200525, end: 20200525
  10. ALBUMINE HUMAINE [Concomitant]
     Active Substance: ALBUMIN HUMAN
     Indication: PRODUCT USED FOR UNKNOWN INDICATION
     Dates: start: 20200529, end: 20200603
  11. DIAZEPAM. [Concomitant]
     Active Substance: DIAZEPAM
     Indication: PRODUCT USED FOR UNKNOWN INDICATION
  12. GENTAMICINE [Suspect]
     Active Substance: GENTAMICIN
     Indication: ENDOCARDITIS
     Route: 041
     Dates: start: 20200526, end: 20200530
  13. TERCIAN [Concomitant]
     Active Substance: CYAMEMAZINE
     Indication: PRODUCT USED FOR UNKNOWN INDICATION
  14. GENTAMICINE [Suspect]
     Active Substance: GENTAMICIN
     Route: 041
     Dates: start: 20200604, end: 20200609
  15. CEFOTAXIME BASE [Concomitant]
     Active Substance: CEFOTAXIME SODIUM
     Indication: ENDOCARDITIS
     Dates: start: 20200525, end: 20200525
  16. AMIKACINE [Concomitant]
     Active Substance: AMIKACIN
     Indication: ENDOCARDITIS
     Dates: start: 20200625, end: 20200625
  17. LEVOFLOXACINE [Concomitant]
     Active Substance: LEVOFLOXACIN
     Indication: ENDOCARDITIS
     Dates: start: 20200525, end: 20200525

REACTIONS (1)
  - Rash maculo-papular [Recovered/Resolved]

NARRATIVE: CASE EVENT DATE: 20200606
